FAERS Safety Report 6342076-0 (Version None)
Quarter: 2009Q3

REPORT INFORMATION
  Report Type: 
  Country: None (occurrence: None)
  Receive Date: 20090903
  Receipt Date: 20090824
  Transmission Date: 20100115
  Serious: Yes (Other)
  Sender: FDA-Public Use
  Company Number: 366911

PATIENT
  Age: 51 Year
  Sex: Female

DRUGS (5)
  1. PACLITAXEL [Suspect]
     Indication: OVARIAN CANCER
     Dosage: INTRAVENOUS
     Route: 042
  2. DEXAMETHASONE [Concomitant]
  3. RANITIDINE [Concomitant]
  4. PHENIRAMINE [Concomitant]
  5. GRANISETRON HCL [Concomitant]

REACTIONS (3)
  - ACUTE CORONARY SYNDROME [None]
  - BLOOD PRESSURE DECREASED [None]
  - CORONARY ARTERY STENOSIS [None]
